FAERS Safety Report 4860120-4 (Version None)
Quarter: 2005Q4

REPORT INFORMATION
  Report Type: 
  Country: None (occurrence: None)
  Receive Date: 20051219
  Receipt Date: 20051208
  Transmission Date: 20060501
  Serious: Yes (Hospitalization)
  Sender: FDA-Public Use
  Company Number: TR-JNJFOC-20051202824

PATIENT
  Age: 26 Year
  Sex: Female

DRUGS (2)
  1. RISPERIDONE [Suspect]
  2. RISPERIDONE [Suspect]
     Indication: SCHIZOPHRENIA

REACTIONS (6)
  - HEART RATE DECREASED [None]
  - HYPOTENSION [None]
  - LOSS OF CONSCIOUSNESS [None]
  - OVERDOSE [None]
  - RESPIRATORY ARREST [None]
  - SUICIDE ATTEMPT [None]
